FAERS Safety Report 6658025-1 (Version None)
Quarter: 2010Q1

REPORT INFORMATION
  Report Type: 
  Country: None (occurrence: None)
  Receive Date: 20100326
  Receipt Date: 20100312
  Transmission Date: 20100710
  Serious: Yes (Hospitalization)
  Sender: FDA-Public Use
  Company Number: 2010GW000187

PATIENT
  Sex: Female

DRUGS (1)
  1. ALDARA [Suspect]
     Indication: SKIN CANCER
     Dosage: 5 PCT; TOP
     Route: 061

REACTIONS (2)
  - CARDIAC DISORDER [None]
  - CONDITION AGGRAVATED [None]
